FAERS Safety Report 8065901-4 (Version None)
Quarter: 2012Q1

REPORT INFORMATION
  Report Type: 
  Country: None (occurrence: None)
  Receive Date: 20120124
  Receipt Date: 20120119
  Transmission Date: 20120608
  Serious: Yes (Life-Threatening, Hospitalization)
  Sender: FDA-Public Use
  Company Number: US-BAYER-2010-003236

PATIENT
  Age: 29 Year
  Sex: Female
  Weight: 94.785 kg

DRUGS (6)
  1. YASMIN [Suspect]
  2. ZYRTEC [Concomitant]
  3. RELAFEN [Concomitant]
     Dosage: 750 MG, BID
  4. YAZ [Suspect]
     Indication: CONTRACEPTION
     Dosage: UNK
     Dates: start: 20070101, end: 20080101
  5. DARVOCET-N 50 [Concomitant]
  6. AMBIEN [Concomitant]

REACTIONS (6)
  - PULMONARY EMBOLISM [None]
  - DEEP VEIN THROMBOSIS [None]
  - THROMBOSIS [None]
  - FATIGUE [None]
  - ASTHENIA [None]
  - PAIN [None]
